FAERS Safety Report 5835991-5 (Version None)
Quarter: 2008Q3

REPORT INFORMATION
  Report Type: 
  Country: None (occurrence: None)
  Receive Date: 20080806
  Receipt Date: 20080729
  Transmission Date: 20090109
  Serious: Yes (Death)
  Sender: FDA-Public Use
  Company Number: JP-ABBOTT-08P-087-0462262-00

PATIENT
  Sex: Male

DRUGS (6)
  1. KALETRA [Suspect]
     Indication: HIV INFECTION
     Dosage: 800 MG/200 MG
     Route: 048
     Dates: start: 20061016, end: 20070805
  2. AZITHROMYCIN HYDRATE [Concomitant]
     Indication: OPPORTUNISTIC INFECTION PROPHYLAXIS
     Route: 048
     Dates: start: 20051206, end: 20070628
  3. RURIOCTOCOG ALFA [Concomitant]
     Indication: HAEMORRHAGE
     Route: 042
     Dates: start: 20020401, end: 20070805
  4. BACTRIM [Concomitant]
     Indication: ANTIFUNGAL PROPHYLAXIS
     Route: 048
     Dates: start: 20070713, end: 20070805
  5. ZIDOVUDINE [Concomitant]
     Indication: HIV INFECTION
     Route: 048
     Dates: start: 20020401, end: 20070805
  6. LAMIVUDINE [Concomitant]
     Indication: HIV INFECTION
     Route: 048
     Dates: start: 20050723, end: 20070805

REACTIONS (4)
  - LARGE INTESTINE CARCINOMA [None]
  - MALIGNANT PLEURAL EFFUSION [None]
  - METASTASES TO LUNG [None]
  - METASTASES TO PLEURA [None]
